FAERS Safety Report 12456944 (Version 1)
Quarter: 2016Q2

REPORT INFORMATION
  Report Type: Spontaneous
  Country: US (occurrence: US)
  Receive Date: 20160610
  Receipt Date: 20160610
  Transmission Date: 20160815
  Serious: Yes (Other)
  Sender: FDA-Public Use
  Company Number: US-BRISTOL-MYERS SQUIBB COMPANY-BMS-2016-043729

PATIENT
  Sex: Female
  Weight: 56.69 kg

DRUGS (2)
  1. ORENCIA [Suspect]
     Active Substance: ABATACEPT
     Indication: OSTEOARTHRITIS
     Dosage: 500 MG, UNK
     Route: 042
     Dates: start: 201602
  2. ORENCIA [Suspect]
     Active Substance: ABATACEPT
     Indication: ARTHRITIS

REACTIONS (12)
  - Haemorrhage [Unknown]
  - Pharyngitis [Unknown]
  - Malaise [Unknown]
  - Drug ineffective [Unknown]
  - Laryngitis [Unknown]
  - Peripheral swelling [Unknown]
  - Arthralgia [Unknown]
  - Urinary tract infection [Unknown]
  - Sinusitis [Unknown]
  - Pain in extremity [Unknown]
  - Joint stiffness [Unknown]
  - Off label use [Unknown]
